FAERS Safety Report 9557037 (Version 1)
Quarter: 2013Q3

REPORT INFORMATION
  Report Type: Spontaneous
  Country: GB (occurrence: GB)
  Receive Date: 20130926
  Receipt Date: 20130926
  Transmission Date: 20140515
  Serious: Yes (Hospitalization, Other)
  Sender: FDA-Public Use
  Company Number: PHHY2013GB103617

PATIENT
  Age: 70 Year
  Sex: Female

DRUGS (8)
  1. DOSULEPIN [Suspect]
     Indication: DEPRESSION
     Dosage: 150 MG QD AT NIGHT
     Route: 048
  2. DOSULEPIN [Suspect]
     Dosage: 75 MG AT NIGHT EVERY DAY
  3. FLUOXETINE [Suspect]
     Indication: DEPRESSION
     Dosage: 20 MG QD
     Route: 048
     Dates: start: 20070813, end: 20070830
  4. FLUOXETINE [Suspect]
     Dosage: 60 MG QD
     Route: 048
     Dates: start: 20070830
  5. CLOPIDOGREL [Concomitant]
     Dosage: 75 MG QD
  6. MORPHINE SULPHATE [Concomitant]
     Dosage: 60 MG BID
  7. PREDNISOLONE [Concomitant]
  8. ALENDRONIC ACID [Concomitant]

REACTIONS (2)
  - Fall [Recovering/Resolving]
  - Balance disorder [Not Recovered/Not Resolved]
